FAERS Safety Report 17568082 (Version 3)
Quarter: 2020Q2

REPORT INFORMATION
  Report Type: Spontaneous
  Country: US (occurrence: US)
  Receive Date: 20200320
  Receipt Date: 20200512
  Transmission Date: 20200713
  Serious: Yes (Hospitalization, Other)
  Sender: FDA-Public Use
  Company Number: US-NOVOPROD-718460

PATIENT
  Age: 77 Year
  Sex: Female
  Weight: 81.6 kg

DRUGS (1)
  1. TRESIBA [Suspect]
     Active Substance: INSULIN DEGLUDEC
     Indication: TYPE 2 DIABETES MELLITUS
     Dosage: 14 UNITS
     Route: 058
     Dates: start: 2019

REACTIONS (2)
  - Diabetic foot [Not Recovered/Not Resolved]
  - Tooth discolouration [Recovered/Resolved]

NARRATIVE: CASE EVENT DATE: 201904
